FAERS Safety Report 16392756 (Version 1)
Quarter: 2019Q2

REPORT INFORMATION
  Report Type: Spontaneous
  Country: JP (occurrence: JP)
  Receive Date: 20190605
  Receipt Date: 20190605
  Transmission Date: 20190711
  Serious: Yes (Life-Threatening, Hospitalization, Disabling)
  Sender: FDA-Public Use
  Company Number: JP-TEVA-2019-JP-1058517

PATIENT
  Age: 49 Year
  Sex: Female

DRUGS (1)
  1. MIRTAZAPINE. [Suspect]
     Active Substance: MIRTAZAPINE
     Indication: OVERDOSE
     Route: 048

REACTIONS (12)
  - Lung consolidation [Recovering/Resolving]
  - Alopecia [Unknown]
  - Cerebral ischaemia [Recovering/Resolving]
  - Intentional overdose [Recovering/Resolving]
  - Anuria [Recovered/Resolved]
  - Cardiac arrest [Recovering/Resolving]
  - Acute kidney injury [Recovered/Resolved]
  - Coma [Recovering/Resolving]
  - Aspiration [Recovering/Resolving]
  - Gait inability [Unknown]
  - Loss of personal independence in daily activities [Not Recovered/Not Resolved]
  - Lung disorder [Recovering/Resolving]
